FAERS Safety Report 17559791 (Version 1)
Quarter: 2020Q1

REPORT INFORMATION
  Report Type: Spontaneous
  Country: US (occurrence: US)
  Receive Date: 20200319
  Receipt Date: 20200319
  Transmission Date: 20200409
  Serious: No
  Sender: FDA-Public Use
  Company Number: US-BAYER-2020-047310

PATIENT
  Age: 76 Year
  Sex: Female

DRUGS (3)
  1. VITAMINS NOS [Concomitant]
     Active Substance: VITAMINS
  2. MIRALAX [Suspect]
     Active Substance: POLYETHYLENE GLYCOL 3350
     Route: 048
  3. DICLOFENAC [Concomitant]
     Active Substance: DICLOFENAC

REACTIONS (1)
  - Expired product administered [Unknown]
